FAERS Safety Report 9711427 (Version 1)
Quarter: 2013Q4

REPORT INFORMATION
  Report Type: Spontaneous
  Country: US (occurrence: US)
  Receive Date: 20131126
  Receipt Date: 20131126
  Transmission Date: 20140711
  Serious: No
  Sender: FDA-Public Use
  Company Number: US-BRISTOL-MYERS SQUIBB COMPANY-19391259

PATIENT
  Age: 60 Year
  Sex: Male
  Weight: 90.7 kg

DRUGS (1)
  1. BYETTA [Suspect]
     Dosage: INITIAL DOSE 5MCG ONCE WEEK
     Route: 058

REACTIONS (1)
  - Dizziness [Recovered/Resolved]
